FAERS Safety Report 10036310 (Version 1)
Quarter: 2014Q1

REPORT INFORMATION
  Report Type: Spontaneous
  Country: US (occurrence: US)
  Receive Date: 20140325
  Receipt Date: 20140325
  Transmission Date: 20141002
  Serious: No
  Sender: FDA-Public Use
  Company Number: US-GILEAD-2014-0097726

PATIENT
  Age: 59 Year
  Sex: Male

DRUGS (11)
  1. LETAIRIS [Suspect]
     Indication: PORTAL HYPERTENSION
     Dosage: 5 MG, BID
     Route: 065
     Dates: start: 20111212
  2. SUMATRIPTAN [Concomitant]
  3. FLEXERIL                           /00428402/ [Concomitant]
  4. EXCEDRIN                           /00391201/ [Concomitant]
  5. REVATIO [Concomitant]
  6. GABAPENTIN [Concomitant]
  7. RANITIDINE [Concomitant]
  8. LACTULOSE [Concomitant]
  9. ALPRAZOLAM [Concomitant]
  10. FLUOXETINE [Concomitant]
  11. SYNTHROID [Concomitant]

REACTIONS (2)
  - Medication error [Unknown]
  - Overdose [Unknown]
